FAERS Safety Report 25988521 (Version 2)
Quarter: 2025Q4

REPORT INFORMATION
  Report Type: Report from Study
  Country: CO (occurrence: CO)
  Receive Date: 20251103
  Receipt Date: 20251107
  Transmission Date: 20260117
  Serious: Yes (Hospitalization, Disabling, Other)
  Sender: HELSINN HEALTHCARE
  Company Number: CO-HBP-2025CO032173

PATIENT
  Sex: Male
  Weight: 100 kg

DRUGS (2)
  1. MECHLORETHAMINE HYDROCHLORIDE [Suspect]
     Active Substance: MECHLORETHAMINE HYDROCHLORIDE
     Indication: Cutaneous T-cell lymphoma
     Dosage: UNK, QD
     Route: 061
     Dates: start: 20250524, end: 20250620
  2. BRENTUXIMAB [Concomitant]
     Active Substance: BRENTUXIMAB
     Indication: Cutaneous T-cell lymphoma
     Dosage: 70 MILLIGRAM/ IV OVER 30 MINUTES, UNKNOWN
     Route: 065

REACTIONS (5)
  - Localised infection [Not Recovered/Not Resolved]
  - Finger amputation [Unknown]
  - Radiation skin injury [Not Recovered/Not Resolved]
  - Therapy cessation [Unknown]
  - Skin lesion [Unknown]

NARRATIVE: CASE EVENT DATE: 20250101
